FAERS Safety Report 20000403 (Version 2)
Quarter: 2022Q1

REPORT INFORMATION
  Report Type: Spontaneous
  Country: US (occurrence: US)
  Receive Date: 20211026
  Receipt Date: 20220325
  Transmission Date: 20220423
  Serious: Yes (Death, Hospitalization, Other)
  Sender: FDA-Public Use
  Company Number: US-AMGEN-USASP2021164450

PATIENT
  Age: 87 Year
  Sex: Female
  Weight: 61.224 kg

DRUGS (1)
  1. EVENITY [Suspect]
     Active Substance: ROMOSOZUMAB-AQQG
     Indication: Product used for unknown indication
     Dosage: 210 MILLIGRAM, QMO
     Route: 065
     Dates: end: 20210322

REACTIONS (10)
  - Cardiac arrest [Fatal]
  - Cardiac failure acute [Fatal]
  - Metabolic acidosis [Fatal]
  - Cardiac failure congestive [Fatal]
  - Vomiting [Unknown]
  - Nausea [Unknown]
  - Gait disturbance [Unknown]
  - Hyponatraemia [Unknown]
  - Joint swelling [Unknown]
  - Hypertension [Unknown]
